FAERS Safety Report 4335115-X (Version None)
Quarter: 2004Q2

REPORT INFORMATION
  Report Type: 
  Country: None (occurrence: None)
  Receive Date: 20040408
  Receipt Date: 20030625
  Transmission Date: 20050107
  Serious: Yes (Other)
  Sender: FDA-Public Use
  Company Number: PHEH2003US05383

PATIENT
  Age: 34 Year
  Sex: Female
  Weight: 94 kg

DRUGS (3)
  1. TEGRETOL [Suspect]
     Indication: EPILEPSY
     Dosage: 400 MG, QHS
     Route: 048
  2. TEGRETOL [Suspect]
     Dosage: 250 MG, QD
  3. PRENATAL VITAMINS [Concomitant]

REACTIONS (6)
  - CAESAREAN SECTION [None]
  - COMPLICATIONS OF MATERNAL EXPOSURE TO THERAPEUTIC DRUGS [None]
  - DRUG EXPOSURE DURING PREGNANCY [None]
  - NORMAL NEWBORN [None]
  - PREGNANCY [None]
  - PREGNANCY INDUCED HYPERTENSION [None]
